FAERS Safety Report 5564336-3 (Version None)
Quarter: 2007Q4

REPORT INFORMATION
  Report Type: 
  Country: None (occurrence: None)
  Receive Date: 20071218
  Receipt Date: 20071210
  Transmission Date: 20080405
  Serious: Yes (Hospitalization)
  Sender: FDA-Public Use
  Company Number: PHRM2007FR02809

PATIENT
  Age: 82 Year
  Sex: Male

DRUGS (11)
  1. TEGRETOL [Suspect]
     Indication: PARTIAL SEIZURES
     Dosage: 200 MG, BID
     Route: 048
  2. TAREG [Concomitant]
     Route: 048
     Dates: start: 20070717
  3. ESIDRIX [Suspect]
     Route: 048
     Dates: start: 20070717, end: 20070730
  4. APROVEL [Suspect]
     Route: 048
     Dates: end: 20061123
  5. COAPROVEL [Suspect]
     Route: 048
     Dates: start: 20061124, end: 20070717
  6. MEMANTINE HCL [Suspect]
     Indication: DEMENTIA ALZHEIMER'S TYPE
     Dosage: 10 MG, BID
     Route: 048
     Dates: end: 20061121
  7. EUPRESSYL [Suspect]
     Dosage: 120 MG, QD
     Route: 048
  8. MEDIATENSYL [Suspect]
     Dosage: 120 MG, QD
     Route: 048
     Dates: end: 20070731
  9. FUROSEMIDE [Concomitant]
     Route: 048
     Dates: end: 20061121
  10. LERCAN [Concomitant]
     Route: 048
     Dates: end: 20070717
  11. SINGULAIR [Concomitant]
     Route: 048
     Dates: start: 20070717

REACTIONS (7)
  - ATRIOVENTRICULAR BLOCK COMPLETE [None]
  - ATRIOVENTRICULAR BLOCK FIRST DEGREE [None]
  - ATRIOVENTRICULAR BLOCK SECOND DEGREE [None]
  - CARDIAC PACEMAKER INSERTION [None]
  - CEREBROVASCULAR ACCIDENT [None]
  - CONDUCTION DISORDER [None]
  - SINUS BRADYCARDIA [None]
